FAERS Safety Report 9161942 (Version 1)
Quarter: 2013Q1

REPORT INFORMATION
  Report Type: Spontaneous
  Country: US (occurrence: None)
  Receive Date: 20130220
  Receipt Date: 20130220
  Transmission Date: 20140127
  Serious: Yes (Other)
  Sender: FDA-Public Use
  Company Number: 2012PROUSA02346

PATIENT
  Age: 87 Year
  Sex: Male
  Weight: 86.8 kg

DRUGS (13)
  1. PROVENGE (SIPULEUCEL-T) SUSPENSION, 250 ML [Suspect]
     Indication: PROSTATE CANCER METASTATIC
     Route: 042
     Dates: start: 20121115, end: 20121115
  2. FIRMAGON [Suspect]
  3. ASPIRIN (ACETYLSALICYLIC ACID) [Concomitant]
  4. CALCIUM WITH VITAMIN D (CALCIUM CARBONATE, ERGOCALCIFEROL) [Concomitant]
  5. FIBER (POLYCARBOPHIL CALCIUM) [Concomitant]
  6. FINASTERIDE (FINASTERIDE) [Concomitant]
  7. FISH OIL (FISH OIL) [Concomitant]
  8. GABAPENTIN (GABAPENTIN) [Concomitant]
  9. LISINOPRIL (LISINOPRIL) [Concomitant]
  10. HYDROCHLOROTHIAZIDE (HYDROCHLOROTHIAZIDE) [Concomitant]
  11. PROBIOTIC (BIFIDOBACTERIUM INFANTIS, LACTOBACILLUS ACIDOPHILUS) [Concomitant]
  12. XGEVA (DENOSUMAB) [Concomitant]
  13. IBUPROFEN (IBUPROFEN) [Concomitant]

REACTIONS (7)
  - Unresponsive to stimuli [None]
  - Hypotension [None]
  - Tachycardia [None]
  - Injection site discomfort [None]
  - Infusion related reaction [None]
  - Staphylococcus test positive [None]
  - Bacterial infection [None]
